FAERS Safety Report 5549896-0 (Version None)
Quarter: 2007Q4

REPORT INFORMATION
  Report Type: 
  Country: None (occurrence: None)
  Receive Date: 20071129
  Receipt Date: 20070816
  Transmission Date: 20080405
  Serious: Yes (Disabling)
  Sender: FDA-Public Use
  Company Number: PHEH2007US10482

PATIENT
  Age: 49 Year
  Sex: Female
  Weight: 54.4 kg

DRUGS (1)
  1. LAMISIL [Suspect]
     Indication: ONYCHOMYCOSIS
     Dosage: 250 MG, ORAL
     Route: 048
     Dates: start: 20070502, end: 20070730

REACTIONS (1)
  - AGEUSIA [None]
